FAERS Safety Report 7986575-4 (Version None)
Quarter: 2011Q4

REPORT INFORMATION
  Report Type: 
  Country: None (occurrence: None)
  Receive Date: 20111216
  Receipt Date: 20110726
  Transmission Date: 20120403
  Serious: No
  Sender: FDA-Public Use
  Company Number: US-BRISTOL-MYERS SQUIBB COMPANY-15925696

PATIENT
  Age: 60 Year
  Sex: Female
  Weight: 66 kg

DRUGS (3)
  1. ABILIFY [Suspect]
     Indication: DEPRESSION
     Dosage: MONOTHERAPY
  2. CRESTOR [Concomitant]
  3. CHOLESTEROL MEDICATION [Concomitant]

REACTIONS (5)
  - IRRITABILITY [None]
  - HEADACHE [None]
  - EYE PAIN [None]
  - MUSCULOSKELETAL STIFFNESS [None]
  - EXPIRED DRUG ADMINISTERED [None]
